FAERS Safety Report 10066915 (Version 4)
Quarter: 2014Q3

REPORT INFORMATION
  Report Type: Spontaneous
  Country: US (occurrence: US)
  Receive Date: 20140409
  Receipt Date: 20140717
  Transmission Date: 20150326
  Serious: Yes (Other)
  Sender: FDA-Public Use
  Company Number: 2014SP001874

PATIENT
  Age: 52 Year
  Sex: Male
  Weight: 102 kg

DRUGS (4)
  1. XANAX [Concomitant]
     Active Substance: ALPRAZOLAM
     Indication: INSOMNIA
     Route: 048
     Dates: start: 2013
  2. LUNESTA [Suspect]
     Active Substance: ESZOPICLONE
     Indication: INSOMNIA
     Route: 048
     Dates: start: 2013
  3. OXYCODONE [Concomitant]
     Active Substance: OXYCODONE
     Route: 045
  4. VALIUM                             /00266901/ [Concomitant]

REACTIONS (6)
  - Convulsion [Recovered/Resolved]
  - Insomnia [Recovered/Resolved]
  - Photopsia [Recovered/Resolved]
  - Dyskinesia [Recovered/Resolved]
  - Drug ineffective [None]
  - Hallucination [Recovered/Resolved]

NARRATIVE: CASE EVENT DATE: 20140611
